FAERS Safety Report 9114843 (Version 1)
Quarter: 2013Q1

REPORT INFORMATION
  Report Type: Report from Study
  Country: DE (occurrence: DE)
  Receive Date: 20130208
  Receipt Date: 20130208
  Transmission Date: 20140127
  Serious: Yes (Life-Threatening, Hospitalization)
  Sender: FDA-Public Use
  Company Number: DE-ROCHE-1188386

PATIENT
  Age: 87 Year
  Sex: Male
  Weight: 70 kg

DRUGS (6)
  1. METHOXY POLYETHYLENE GLYCOL-EPOETIN BETA [Suspect]
     Indication: NEPHROGENIC ANAEMIA
     Dosage: LAST DOSE PRIOR TO SAE:06/DEC/2011
     Route: 058
     Dates: start: 20110712
  2. CARVEDILOL [Suspect]
     Indication: NEPHROGENIC ANAEMIA
     Route: 065
     Dates: start: 20111227
  3. ASS [Concomitant]
     Route: 065
     Dates: start: 20111227
  4. CANDESARTAN [Concomitant]
     Route: 065
     Dates: start: 20111227
  5. LERCANIDIPINE [Concomitant]
     Route: 065
     Dates: start: 20111227
  6. URAPIDIL [Concomitant]
     Route: 065
     Dates: start: 20111227

REACTIONS (3)
  - Hypertensive crisis [Recovered/Resolved]
  - Chest pain [Recovered/Resolved]
  - Mobility decreased [Unknown]
